FAERS Safety Report 4470844-9 (Version None)
Quarter: 2004Q4

REPORT INFORMATION
  Report Type: 
  Country: None (occurrence: None)
  Receive Date: 20041011
  Receipt Date: 20040908
  Transmission Date: 20050328
  Serious: Yes (Other)
  Sender: FDA-Public Use
  Company Number: PHBS2004JP11891

PATIENT
  Age: 33 Year
  Sex: Male

DRUGS (9)
  1. RITALIN [Suspect]
     Route: 048
  2. TEGRETOL [Suspect]
     Route: 048
  3. AKINETON [Suspect]
     Route: 048
  4. ERIMIN [Suspect]
     Route: 048
  5. WINTERMIN [Suspect]
     Route: 048
  6. RISPERDAL [Suspect]
     Route: 048
  7. DEPAS [Suspect]
     Route: 048
  8. MYSLEE [Suspect]
     Route: 048
  9. SERENZIN [Suspect]

REACTIONS (2)
  - PAIN [None]
  - PRIAPISM [None]
